FAERS Safety Report 14159646 (Version 22)
Quarter: 2018Q3

REPORT INFORMATION
  Report Type: Report from Study
  Country: US (occurrence: US)
  Receive Date: 20171103
  Receipt Date: 20180821
  Transmission Date: 20181010
  Serious: Yes (Death, Hospitalization, Other)
  Sender: FDA-Public Use
  Company Number: US-ACTELION-A-US2017-148761

PATIENT
  Age: 73 Year
  Sex: Male
  Weight: 123.36 kg

DRUGS (13)
  1. TYVASO [Suspect]
     Active Substance: TREPROSTINIL
     Indication: PULMONARY ARTERIAL HYPERTENSION
     Dosage: UNK
     Route: 055
  2. XARELTO [Concomitant]
     Active Substance: RIVAROXABAN
  3. WARFARIN [Concomitant]
     Active Substance: WARFARIN
  4. OXYGEN. [Concomitant]
     Active Substance: OXYGEN
     Dosage: 10 L, UNK
  5. TYVASO [Suspect]
     Active Substance: TREPROSTINIL
     Dosage: 18?54MCG (3?9 BREATHS) QID
     Route: 055
     Dates: start: 20130417
  6. SILDENAFIL. [Concomitant]
     Active Substance: SILDENAFIL
  7. ADEMPAS [Suspect]
     Active Substance: RIOCIGUAT
     Dosage: 1 MG, TID
     Route: 065
  8. AMLODIPINE [Concomitant]
     Active Substance: AMLODIPINE BESYLATE
  9. OPSUMIT [Suspect]
     Active Substance: MACITENTAN
     Dosage: 10 MG, QD
     Route: 048
  10. OPSUMIT [Suspect]
     Active Substance: MACITENTAN
     Indication: PULMONARY ARTERIAL HYPERTENSION
     Dosage: 10 MG, QD
     Route: 048
     Dates: start: 20141208
  11. ADEMPAS [Suspect]
     Active Substance: RIOCIGUAT
     Dosage: UNK
     Route: 065
  12. REMODULIN [Suspect]
     Active Substance: TREPROSTINIL
     Indication: PRODUCT USED FOR UNKNOWN INDICATION
     Dosage: UNK
     Route: 058
     Dates: start: 20180402
  13. ADEMPAS [Suspect]
     Active Substance: RIOCIGUAT
     Indication: PRODUCT USED FOR UNKNOWN INDICATION
     Dosage: 2.5 MG, TID
     Route: 065

REACTIONS (39)
  - Wound [Unknown]
  - Cataract operation [Unknown]
  - Malaise [Unknown]
  - Wheezing [Unknown]
  - Dyspnoea [Unknown]
  - Skin graft infection [Unknown]
  - Peripheral swelling [Unknown]
  - Muscle spasms [Unknown]
  - Oedema [Recovering/Resolving]
  - Cellulitis [Unknown]
  - Infusion site swelling [Unknown]
  - Urinary tract infection [Unknown]
  - Fungal skin infection [Unknown]
  - Fatigue [Unknown]
  - Gout [Unknown]
  - Infusion site erythema [Unknown]
  - Infusion site irritation [Unknown]
  - Skin graft [Unknown]
  - Oxygen saturation decreased [Unknown]
  - Dyspnoea exertional [Unknown]
  - Condition aggravated [Unknown]
  - Paraesthesia [Unknown]
  - Joint stiffness [Unknown]
  - Infusion site pain [Unknown]
  - Infusion site warmth [Unknown]
  - Death [Fatal]
  - Renal failure [Unknown]
  - Secretion discharge [Unknown]
  - Headache [Recovered/Resolved]
  - Rash [Unknown]
  - Infusion site haemorrhage [Unknown]
  - Joint swelling [Unknown]
  - Hypoaesthesia [Unknown]
  - Device infusion issue [Unknown]
  - Fall [Unknown]
  - Atrial fibrillation [Unknown]
  - Pulmonary arterial pressure increased [Unknown]
  - Sinus disorder [Unknown]
  - Swelling [Unknown]

NARRATIVE: CASE EVENT DATE: 20170808
